FAERS Safety Report 6019808-4 (Version None)
Quarter: 2008Q4

REPORT INFORMATION
  Report Type: 
  Country: None (occurrence: None)
  Receive Date: 20081224
  Receipt Date: 20081217
  Transmission Date: 20090506
  Serious: Yes (Other)
  Sender: FDA-Public Use
  Company Number: US-ROXANE LABORATORIES, INC.-2008-RO-00449RO

PATIENT
  Age: 21 Year
  Sex: Male

DRUGS (10)
  1. HYDROMORPHONE HCL [Suspect]
     Indication: PHANTOM PAIN
     Dosage: 80MG
     Route: 042
  2. METHADONE [Suspect]
     Indication: PHANTOM PAIN
     Dosage: 15MG
     Route: 048
  3. FENTANYL-100 [Suspect]
     Indication: PHANTOM PAIN
     Route: 042
  4. NORTRIPTYLINE HCL [Suspect]
  5. GABAPENTIN [Suspect]
     Dosage: 1800MG
  6. GABAPENTIN [Suspect]
     Dosage: 2700MG
  7. AMITRIPTYLINE HCL [Suspect]
     Dosage: 50MG
  8. CLONIDINE [Suspect]
     Dosage: .1MG
     Route: 062
  9. MEMANTINE HCL [Suspect]
  10. MEMANTINE HCL [Suspect]
     Dosage: 20MG

REACTIONS (1)
  - DRUG INEFFECTIVE [None]
